FAERS Safety Report 8942214 (Version 1)
Quarter: 2012Q4

REPORT INFORMATION
  Report Type: Spontaneous
  Country: US (occurrence: None)
  Receive Date: 20121129
  Receipt Date: 20121129
  Transmission Date: 20130627
  Serious: Yes (Other)
  Sender: FDA-Public Use
  Company Number: None

PATIENT
  Age: 61 Year
  Sex: Female

DRUGS (1)
  1. OLANZAPINE AND FLUOXETINE [Suspect]
     Dosage: Take 1 capsule at bedtime
     Dates: start: 20121017

REACTIONS (3)
  - Suicidal ideation [None]
  - Product substitution issue [None]
  - Product quality issue [None]
